FAERS Safety Report 4942645-6 (Version None)
Quarter: 2006Q1

REPORT INFORMATION
  Report Type: 
  Country: None (occurrence: None)
  Receive Date: 20060308
  Receipt Date: 20060302
  Transmission Date: 20060701
  Serious: Yes (Hospitalization)
  Sender: FDA-Public Use
  Company Number: 200610858GDS

PATIENT
  Age: 34 Year
  Sex: Male

DRUGS (1)
  1. MOXIFLOXACIN HCL [Suspect]
     Indication: EAR PAIN
     Dosage: 400 MG, TOTAL DAILY, ORAL
     Route: 048
     Dates: start: 20060220, end: 20060222

REACTIONS (2)
  - PETECHIAE [None]
  - THROMBOCYTOPENIA [None]
